FAERS Safety Report 10046625 (Version 1)
Quarter: 2014Q1

REPORT INFORMATION
  Report Type: Spontaneous
  Country: US (occurrence: None)
  Receive Date: 20140328
  Receipt Date: 20140328
  Transmission Date: 20141002
  Serious: Yes (Disabling, Other)
  Sender: FDA-Public Use
  Company Number: None

PATIENT
  Age: 63 Year
  Sex: Male
  Weight: 102.06 kg

DRUGS (4)
  1. LEVOFLOXACIN [Suspect]
     Indication: ARTHRITIS
     Dosage: 14 PILLS ONCE A DAY BY MOUTH
     Route: 048
     Dates: start: 20130530, end: 20130613
  2. LISINOPROL [Concomitant]
  3. METOPROL [Concomitant]
  4. WARFARIN [Concomitant]

REACTIONS (3)
  - Arthralgia [None]
  - Musculoskeletal pain [None]
  - Pain in extremity [None]
